FAERS Safety Report 23222276 (Version 2)
Quarter: 2023Q4

REPORT INFORMATION
  Report Type: Spontaneous
  Country: CN (occurrence: CN)
  Receive Date: 20231123
  Receipt Date: 20231201
  Transmission Date: 20240109
  Serious: Yes (Other)
  Sender: FDA-Public Use
  Company Number: CN-UCBSA-2023054928

PATIENT
  Age: 25 Year
  Weight: 40 kg

DRUGS (2)
  1. KEPPRA [Suspect]
     Active Substance: LEVETIRACETAM
     Indication: Epilepsy
     Dosage: 0.5 GRAM, 2X/DAY (BID) (0.5G IN MORNING AND 0.5 G IN EVENING))
     Route: 048
  2. KEPPRA [Suspect]
     Active Substance: LEVETIRACETAM
     Dosage: 0.75 GRAM IN THE MORNING (1.5 TABLETS ? 0.5 G) AND 0.75 G IN THE EVENING (3 TABLETS ? 0.25 G)
     Route: 048
     Dates: start: 202305

REACTIONS (4)
  - Epilepsy [Unknown]
  - Therapeutic product ineffective [Unknown]
  - Drug ineffective [Unknown]
  - Wrong technique in product usage process [Unknown]

NARRATIVE: CASE EVENT DATE: 20230101
